FAERS Safety Report 6093638-X (Version None)
Quarter: 2009Q1

REPORT INFORMATION
  Report Type: 
  Country: None (occurrence: None)
  Receive Date: 20090226
  Receipt Date: 20090217
  Transmission Date: 20090719
  Serious: Yes (Hospitalization)
  Sender: FDA-Public Use
  Company Number: DE-WATSON-2009-01183

PATIENT
  Sex: Male

DRUGS (1)
  1. TRELSTAR LA [Suspect]
     Indication: PROSTATE CANCER
     Dosage: UNK
     Route: 065
     Dates: start: 20090210

REACTIONS (5)
  - ABDOMINAL PAIN [None]
  - ASTHENIA [None]
  - CARDIOVASCULAR INSUFFICIENCY [None]
  - INJECTION SITE PAIN [None]
  - OFF LABEL USE [None]
